FAERS Safety Report 7785383-7 (Version None)
Quarter: 2011Q3

REPORT INFORMATION
  Report Type: 
  Country: None (occurrence: None)
  Receive Date: 20110929
  Receipt Date: 20110914
  Transmission Date: 20111222
  Serious: Yes (Other)
  Sender: FDA-Public Use
  Company Number: CH-JNJFOC-20110905378

PATIENT
  Age: 34 Year
  Sex: Female

DRUGS (1)
  1. SPORANOX [Suspect]
     Indication: FUNGAL INFECTION
     Route: 065
     Dates: start: 20110516, end: 20110530

REACTIONS (1)
  - MATERNAL EXPOSURE DURING PREGNANCY [None]
